FAERS Safety Report 10096822 (Version 5)
Quarter: 2014Q3

REPORT INFORMATION
  Report Type: Report from Study
  Country: DE (occurrence: DE)
  Receive Date: 20140422
  Receipt Date: 20140702
  Transmission Date: 20150326
  Serious: Yes (Hospitalization)
  Sender: FDA-Public Use
  Company Number: PHHY2014DE046769

PATIENT
  Age: 68 Year
  Sex: Male

DRUGS (17)
  1. ALLOPURINOL. [Concomitant]
     Active Substance: ALLOPURINOL
     Indication: HYPERURICAEMIA
     Dosage: 150 MG, PER DAY
  2. OMACOR [Concomitant]
     Active Substance: OMEGA-3-ACID ETHYL ESTERS
     Indication: HYPERTRIGLYCERIDAEMIA
     Dosage: 4000 MG, PER DAY
  3. TORASEMID [Concomitant]
     Active Substance: TORSEMIDE
     Indication: DEHYDRATION
     Dosage: 20 MG, PER DAY
  4. AMN107 [Suspect]
     Active Substance: NILOTINIB
     Dosage: 600 MG, DAILY
     Route: 048
     Dates: end: 20140415
  5. EXFORGE HCT [Concomitant]
     Active Substance: AMLODIPINE BESYLATE\HYDROCHLOROTHIAZIDE\VALSARTAN
     Indication: HYPERTENSION
     Dosage: 25 MG, PER DAY
  6. DEKRISTOL [Concomitant]
     Active Substance: CHOLECALCIFEROL
     Indication: VITAMIN D DEFICIENCY
     Dosage: 20000 IU, DAILY
  7. CALCIUM ACETATE. [Concomitant]
     Active Substance: CALCIUM ACETATE
     Indication: PROPHYLAXIS
     Dosage: 1425 MG, PER DAY
  8. ATORVASTATIN [Concomitant]
     Active Substance: ATORVASTATIN
     Indication: HYPERCHOLESTEROLAEMIA
     Dosage: 40 MG, PER DAY
  9. AMN107 [Suspect]
     Active Substance: NILOTINIB
     Indication: CHRONIC MYELOID LEUKAEMIA
     Dosage: 600 MG, DAILY
     Route: 048
     Dates: start: 20130510, end: 20140102
  10. RAMIPRIL ALMUS [Concomitant]
     Indication: HYPERTENSION
     Dosage: 15 MG, PER DAY
  11. METOPROLOL [Concomitant]
     Active Substance: METOPROLOL
     Indication: HYPERTENSION
     Dosage: 200 MG, PER DAY
  12. ANTI KALIUM [Concomitant]
     Indication: HYPERKALAEMIA
  13. ENYGLID [Concomitant]
     Indication: TYPE 2 DIABETES MELLITUS
     Dosage: 6 MG, PER DAY
  14. EINSALPHA [Concomitant]
     Indication: BONE DISORDER
     Dosage: 0.5 UG, DAILY
  15. JANUVIA [Concomitant]
     Active Substance: SITAGLIPTIN PHOSPHATE
     Indication: HYPERTRIGLYCERIDAEMIA
     Dosage: 100 MG, PER DAY
  16. ASS ^HEXAL^ [Concomitant]
     Active Substance: ASPIRIN
     Indication: HYPERTENSION
  17. CLONISTADA [Concomitant]
     Indication: HYPERTENSION
     Dosage: 0.30 MG, PER DAY

REACTIONS (1)
  - Pneumonia [Recovered/Resolved]

NARRATIVE: CASE EVENT DATE: 20140408
